FAERS Safety Report 14367018 (Version 1)
Quarter: 2018Q1

REPORT INFORMATION
  Report Type: Spontaneous
  Country: US (occurrence: US)
  Receive Date: 20180108
  Receipt Date: 20180108
  Transmission Date: 20180509
  Serious: No
  Sender: FDA-Public Use
  Company Number: None

PATIENT
  Age: 67 Year
  Sex: Male
  Weight: 75 kg

DRUGS (1)
  1. CABOZANTINIB [Suspect]
     Active Substance: CABOZANTINIB
     Indication: RENAL CANCER
     Route: 048
     Dates: start: 20170807, end: 20170821

REACTIONS (4)
  - Confusional state [None]
  - Haemorrhage [None]
  - Pyrexia [None]
  - Skin lesion [None]

NARRATIVE: CASE EVENT DATE: 20170821
